FAERS Safety Report 6039135-9 (Version None)
Quarter: 2009Q1

REPORT INFORMATION
  Report Type: 
  Country: None (occurrence: None)
  Receive Date: 20090115
  Receipt Date: 20081031
  Transmission Date: 20090719
  Serious: Yes (Hospitalization)
  Sender: FDA-Public Use
  Company Number: FR-ROCHE-606685

PATIENT
  Sex: Male
  Weight: 76 kg

DRUGS (1)
  1. METHOXY POLYETHYLENE GLYCOL-EPOETIN BETA [Suspect]
     Dosage: FORM PRE-FILLED SYRINGE
     Route: 058
     Dates: start: 20081006

REACTIONS (1)
  - GASTROINTESTINAL OBSTRUCTION [None]
